FAERS Safety Report 24162592 (Version 1)
Quarter: 2024Q3

REPORT INFORMATION
  Report Type: Spontaneous
  Country: US (occurrence: None)
  Receive Date: 20240731
  Receipt Date: 20240731
  Transmission Date: 20241017
  Serious: Yes (unspecified)
  Sender: Public
  Company Number: None

PATIENT
  Age: 79 Year
  Sex: Female

DRUGS (1)
  1. LENALIDOMIDE [Suspect]
     Active Substance: LENALIDOMIDE
     Indication: Therapy interrupted
     Dosage: 10MG DAILY

REACTIONS (3)
  - Myocardial infarction [None]
  - Weight fluctuation [None]
  - Therapy interrupted [None]
